FAERS Safety Report 5287727-7 (Version None)
Quarter: 2007Q2

REPORT INFORMATION
  Report Type: 
  Country: None (occurrence: None)
  Receive Date: 20070403
  Receipt Date: 20070403
  Transmission Date: 20071010
  Serious: Yes (Hospitalization)
  Sender: FDA-Public Use
  Company Number: None

PATIENT
  Age: 1 Day
  Sex: Male
  Weight: 2.268 kg

DRUGS (1)
  1. GENTAMICIN [Suspect]
     Indication: SEPSIS
     Dates: start: 19971127, end: 19971204

REACTIONS (4)
  - DEAFNESS [None]
  - MEDICATION ERROR [None]
  - NERVOUS SYSTEM DISORDER [None]
  - RENAL DISORDER [None]
